FAERS Safety Report 4634217-8 (Version None)
Quarter: 2005Q2

REPORT INFORMATION
  Report Type: 
  Country: None (occurrence: None)
  Receive Date: 20050413
  Receipt Date: 20050331
  Transmission Date: 20051028
  Serious: Yes (Hospitalization)
  Sender: FDA-Public Use
  Company Number: JP-NOVOPROD-243307

PATIENT
  Age: 76 Year
  Sex: Male

DRUGS (1)
  1. GLUCAGON G NOVO [Suspect]
     Indication: ENDOSCOPY UPPER GASTROINTESTINAL TRACT
     Dosage: 1 MG, SINGLE
     Route: 030
     Dates: start: 20050328

REACTIONS (3)
  - LOSS OF CONSCIOUSNESS [None]
  - PROCEDURAL COMPLICATION [None]
  - SHOCK [None]
